FAERS Safety Report 21208515 (Version 2)
Quarter: 2022Q3

REPORT INFORMATION
  Report Type: Spontaneous
  Country: US (occurrence: US)
  Receive Date: 20220812
  Receipt Date: 20220822
  Transmission Date: 20221026
  Serious: Yes (Hospitalization, Disabling, Other)
  Sender: FDA-Public Use
  Company Number: US-ELI_LILLY_AND_COMPANY-US202208003451

PATIENT
  Sex: Male

DRUGS (14)
  1. HUMULIN N [Suspect]
     Active Substance: INSULIN HUMAN
     Indication: Type 1 diabetes mellitus
     Dosage: 17 U, EACH MORNING
     Route: 058
     Dates: start: 2015
  2. HUMULIN N [Suspect]
     Active Substance: INSULIN HUMAN
     Indication: Type 1 diabetes mellitus
     Dosage: 17 U, EACH MORNING
     Route: 058
     Dates: start: 2015
  3. HUMULIN N [Suspect]
     Active Substance: INSULIN HUMAN
     Dosage: 9 U, DAILY (AT NIGHT)
     Route: 058
  4. HUMULIN N [Suspect]
     Active Substance: INSULIN HUMAN
     Dosage: 9 U, DAILY (AT NIGHT)
     Route: 058
  5. HUMULIN N [Suspect]
     Active Substance: INSULIN HUMAN
     Dosage: 17 U, EACH MORNING
     Route: 058
  6. HUMULIN N [Suspect]
     Active Substance: INSULIN HUMAN
     Dosage: 17 U, EACH MORNING
     Route: 058
  7. HUMULIN N [Suspect]
     Active Substance: INSULIN HUMAN
     Dosage: 9 U, DAILY (AT NIGHT)
     Route: 058
  8. HUMULIN N [Suspect]
     Active Substance: INSULIN HUMAN
     Dosage: 9 U, DAILY (AT NIGHT)
     Route: 058
  9. HUMULIN N [Suspect]
     Active Substance: INSULIN HUMAN
     Dosage: 20 U, EACH MORNING
     Route: 058
  10. HUMULIN N [Suspect]
     Active Substance: INSULIN HUMAN
     Dosage: 20 U, EACH MORNING
     Route: 058
  11. HUMULIN N [Suspect]
     Active Substance: INSULIN HUMAN
     Dosage: 10 U, DAILY (AT NIGHT)
     Route: 058
  12. HUMULIN N [Suspect]
     Active Substance: INSULIN HUMAN
     Dosage: 10 U, DAILY (AT NIGHT)
     Route: 058
  13. HUMALOG [Suspect]
     Active Substance: INSULIN LISPRO
     Indication: Type 1 diabetes mellitus
     Dosage: UNK UNK, UNKNOWN
     Route: 058
     Dates: start: 2014
  14. METFORMIN [Concomitant]
     Active Substance: METFORMIN HYDROCHLORIDE
     Indication: Product used for unknown indication
     Dosage: UNK
     Dates: start: 2014

REACTIONS (19)
  - Spinal fracture [Not Recovered/Not Resolved]
  - Cerebral haemorrhage [Recovered/Resolved]
  - Rib fracture [Recovered/Resolved]
  - Skull fracture [Unknown]
  - Cerebrovascular accident [Recovered/Resolved]
  - Road traffic accident [Recovered/Resolved]
  - Intervertebral disc protrusion [Unknown]
  - Cervical vertebral fracture [Unknown]
  - Renal injury [Unknown]
  - Blood glucose increased [Recovered/Resolved]
  - Thought blocking [Not Recovered/Not Resolved]
  - Hypoaesthesia [Not Recovered/Not Resolved]
  - Blood glucose increased [Not Recovered/Not Resolved]
  - Road traffic accident [Unknown]
  - Glycosylated haemoglobin increased [Not Recovered/Not Resolved]
  - Blood glucose decreased [Unknown]
  - Injection site haemorrhage [Unknown]
  - Wrong technique in product usage process [Unknown]
  - Product storage error [Unknown]

NARRATIVE: CASE EVENT DATE: 20160101
